FAERS Safety Report 20760574 (Version 3)
Quarter: 2024Q4

REPORT INFORMATION
  Report Type: Report from Study
  Country: CA (occurrence: CA)
  Receive Date: 20220428
  Receipt Date: 20241221
  Transmission Date: 20250115
  Serious: Yes (Death, Hospitalization)
  Sender: CSL BEHRING
  Company Number: CA-BEH-2022144096

PATIENT
  Age: 82 Year
  Sex: Female
  Weight: 122 kg

DRUGS (10)
  1. BERINERT [Suspect]
     Active Substance: HUMAN C1-ESTERASE INHIBITOR
     Indication: Hereditary angioedema
     Dosage: 1000 INTERNATIONAL UNIT, BIW
     Route: 042
     Dates: start: 20150315
  2. BERINERT [Suspect]
     Active Substance: HUMAN C1-ESTERASE INHIBITOR
     Indication: Hereditary angioedema
     Dosage: 1000 INTERNATIONAL UNIT, BIW
     Route: 042
     Dates: start: 20150315
  3. BERINERT [Suspect]
     Active Substance: HUMAN C1-ESTERASE INHIBITOR
     Indication: Prophylaxis
     Dosage: UNK
     Route: 065
  4. BERINERT [Suspect]
     Active Substance: HUMAN C1-ESTERASE INHIBITOR
     Indication: Prophylaxis
     Dosage: UNK
     Route: 065
  5. BERINERT [Suspect]
     Active Substance: HUMAN C1-ESTERASE INHIBITOR
     Indication: Off label use
  6. BERINERT [Suspect]
     Active Substance: HUMAN C1-ESTERASE INHIBITOR
     Indication: Off label use
  7. HUMAN C1-ESTERASE INHIBITOR [Suspect]
     Active Substance: HUMAN C1-ESTERASE INHIBITOR
     Indication: Prophylaxis
     Dosage: 1000 IU, QW
     Route: 042
  8. HUMAN C1-ESTERASE INHIBITOR [Suspect]
     Active Substance: HUMAN C1-ESTERASE INHIBITOR
     Indication: Hereditary angioedema
     Dosage: UNK
     Route: 065
  9. DANAZOL [Concomitant]
     Active Substance: DANAZOL
     Dosage: 50 MILLIGRAM, BID
  10. DANAZOL [Concomitant]
     Active Substance: DANAZOL
     Dosage: 150 MILLIGRAM, QD

REACTIONS (8)
  - Chronic obstructive pulmonary disease [Fatal]
  - Off label use [Fatal]
  - Pericardial effusion [Fatal]
  - Oedema peripheral [Fatal]
  - Viral pharyngitis [Fatal]
  - Death [Fatal]
  - Oropharyngeal pain [Fatal]
  - Cough [Fatal]

NARRATIVE: CASE EVENT DATE: 20220407
